FAERS Safety Report 10176626 (Version 2)
Quarter: 2018Q3

REPORT INFORMATION
  Report Type: Spontaneous
  Country: IT (occurrence: IT)
  Receive Date: 20140516
  Receipt Date: 20180904
  Transmission Date: 20181010
  Serious: Yes (Other)
  Sender: FDA-Public Use
  Company Number: IT-ASTRAZENECA-2014SE32233

PATIENT
  Age: 58 Year
  Sex: Male

DRUGS (5)
  1. LUCEN [Concomitant]
     Active Substance: ESOMEPRAZOLE
     Indication: GASTRIC DISORDER
     Dosage: 40
  2. CRESTOR [Suspect]
     Active Substance: ROSUVASTATIN CALCIUM
     Route: 048
  3. PROPAFENONE. [Concomitant]
     Active Substance: PROPAFENONE
     Indication: EXTRASYSTOLES
     Dosage: 150 TWO TIMES A DAY
  4. CARDIOASPIRIN [Suspect]
     Active Substance: ASPIRIN
     Route: 048
  5. ENAPREN [Suspect]
     Active Substance: ENALAPRIL MALEATE
     Route: 065

REACTIONS (5)
  - Atrial fibrillation [Unknown]
  - Gastrooesophageal sphincter insufficiency [Unknown]
  - Gastritis [Unknown]
  - Ventricular arrhythmia [Unknown]
  - Atrial flutter [Unknown]
